FAERS Safety Report 10027569 (Version 3)
Quarter: 2014Q3

REPORT INFORMATION
  Report Type: Spontaneous
  Country: IT (occurrence: None)
  Receive Date: 20140318
  Receipt Date: 20140716
  Transmission Date: 20150326
  Serious: Yes (Hospitalization)
  Sender: FDA-Public Use
  Company Number: AG-2014-000777

PATIENT
  Age: 76 Year
  Sex: Male

DRUGS (6)
  1. ESKIM [Concomitant]
  2. LEUKERAN (2 MILLIGRAM, FILM-COATED TABLET) [Suspect]
     Active Substance: CHLORAMBUCIL
     Indication: CHRONIC LYMPHOCYTIC LEUKAEMIA
     Dosage: UNKNOWN (36 MG, CYCLICAL), ORAL
     Route: 048
     Dates: start: 20121030, end: 20121207
  3. NOVORPAID [Concomitant]
  4. LEVEMIR [Concomitant]
     Active Substance: INSULIN DETEMIR
  5. FUROSEMIDE. [Concomitant]
     Active Substance: FUROSEMIDE
  6. ALLOPURINOL. [Concomitant]
     Active Substance: ALLOPURINOL

REACTIONS (2)
  - Oral candidiasis [None]
  - Febrile bone marrow aplasia [None]

NARRATIVE: CASE EVENT DATE: 20121207
